FAERS Safety Report 5453818-0 (Version None)
Quarter: 2007Q3

REPORT INFORMATION
  Report Type: 
  Country: None (occurrence: None)
  Receive Date: 20070917
  Receipt Date: 20070907
  Transmission Date: 20080115
  Serious: Yes (Other)
  Sender: FDA-Public Use
  Company Number: A0679203A

PATIENT
  Age: 72 Year
  Sex: Male

DRUGS (4)
  1. AVODART [Suspect]
     Indication: BENIGN PROSTATIC HYPERPLASIA
     Dosage: .5MG PER DAY
     Route: 048
     Dates: start: 20070701
  2. ASPIRIN [Concomitant]
  3. VITAMINS [Concomitant]
  4. LYCOPENE [Concomitant]

REACTIONS (5)
  - BLOOD URINE PRESENT [None]
  - ERECTILE DYSFUNCTION [None]
  - LIBIDO DECREASED [None]
  - NEOPLASM MALIGNANT [None]
  - RENAL DISORDER [None]
